FAERS Safety Report 7876951 (Version 7)
Quarter: 2014Q2

REPORT INFORMATION
  Report Type: Spontaneous
  Country: JP (occurrence: JP)
  Receive Date: 20110329
  Receipt Date: 20140627
  Transmission Date: 20141212
  Serious: Yes (Hospitalization, Other)
  Sender: FDA-Public Use
  Company Number: JP-BAYER-2011-026375

PATIENT
  Age: 63 Year
  Sex: Female
  Weight: 48.07 kg

DRUGS (12)
  1. NEXAVAR [Suspect]
     Indication: HEPATOCELLULAR CARCINOMA
     Dosage: 200 MG, TID
     Route: 048
     Dates: start: 20110107, end: 20110128
  2. NEXAVAR [Suspect]
     Indication: METASTASES TO LUNG
     Dosage: 200 MG, TID
     Route: 048
     Dates: start: 20110305, end: 20110324
  3. NEXAVAR [Suspect]
     Indication: HEPATOCELLULAR CARCINOMA
     Dosage: 200 MG, TID
     Route: 048
     Dates: start: 20110317
  4. NEXAVAR [Suspect]
     Indication: HEPATOCELLULAR CARCINOMA
     Dosage: 200 MG, BID
     Route: 048
     Dates: start: 20110422, end: 20110822
  5. NEXAVAR [Suspect]
     Indication: HEPATOCELLULAR CARCINOMA
     Dosage: 200 MG, BID
     Route: 048
     Dates: start: 20110831, end: 20111023
  6. NEXAVAR [Suspect]
     Indication: HEPATOCELLULAR CARCINOMA
     Dosage: 200 MG, BID
     Route: 048
     Dates: start: 20111025, end: 20111030
  7. NEXAVAR [Suspect]
     Indication: HEPATOCELLULAR CARCINOMA
     Dosage: 200 MG, BID
     Route: 048
     Dates: start: 20111103
  8. AMLODIN [Concomitant]
     Dosage: DAILY DOSE 5 MG
     Route: 048
  9. UREPEARL [Concomitant]
     Indication: DRUG TOXICITY PROPHYLAXIS
     Dosage: UNK
     Route: 061
     Dates: start: 20110107
  10. MIRIPLATIN [Concomitant]
     Indication: THERAPEUTIC EMBOLISATION
     Dosage: UNK
     Route: 025
     Dates: start: 20101222, end: 20101222
  11. FARMORUBICIN [Concomitant]
     Indication: THERAPEUTIC EMBOLISATION
     Dosage: DAILY DOSE 60 MG
     Route: 025
     Dates: start: 20101222, end: 20101222
  12. GASPORT [Concomitant]
     Indication: GASTRITIS
     Dosage: 20 MG, QD
     Dates: start: 20101229

REACTIONS (15)
  - Skin necrosis [Recovering/Resolving]
  - Wound infection [Recovered/Resolved]
  - Impaired healing [Recovering/Resolving]
  - Hepatectomy [Recovered/Resolved with Sequelae]
  - Palmar-plantar erythrodysaesthesia syndrome [Recovered/Resolved]
  - Angina unstable [Recovered/Resolved]
  - Blood creatine phosphokinase increased [Recovered/Resolved]
  - Blood creatine phosphokinase MB increased [Recovered/Resolved]
  - Chest pain [Recovered/Resolved]
  - Malaise [Recovered/Resolved]
  - Diarrhoea [Recovered/Resolved]
  - Decreased appetite [Recovered/Resolved]
  - Diarrhoea [Recovering/Resolving]
  - C-reactive protein increased [Recovering/Resolving]
  - Platelet count decreased [Not Recovered/Not Resolved]
